FAERS Safety Report 16346607 (Version 1)
Quarter: 2019Q2

REPORT INFORMATION
  Report Type: Spontaneous
  Country: US (occurrence: US)
  Receive Date: 20190523
  Receipt Date: 20190523
  Transmission Date: 20190711
  Serious: Yes (Death)
  Sender: FDA-Public Use
  Company Number: PHEH2019US022059

PATIENT
  Sex: Male

DRUGS (1)
  1. GLEEVEC [Suspect]
     Active Substance: IMATINIB MESYLATE
     Indication: ACUTE LYMPHOCYTIC LEUKAEMIA
     Dosage: 450 MG, QD TAKE 0.5 TABLET (50MG) BY MOUTH ONCE A DAY WITH IMATINIB (GLEEVEC) 400MG TABLET DAILY FOR
     Route: 048
     Dates: start: 201812

REACTIONS (1)
  - Death [Fatal]
